FAERS Safety Report 12273445 (Version 1)
Quarter: 2016Q2

REPORT INFORMATION
  Report Type: Spontaneous
  Country: US (occurrence: US)
  Receive Date: 20160415
  Receipt Date: 20160415
  Transmission Date: 20160815
  Serious: Yes (Hospitalization)
  Sender: FDA-Public Use
  Company Number: US-JNJFOC-20160412973

PATIENT
  Age: 28 Year
  Sex: Male
  Weight: 81.65 kg

DRUGS (7)
  1. DEXEDRINE [Concomitant]
     Active Substance: DEXTROAMPHETAMINE SULFATE
  2. RISPERDAL [Suspect]
     Active Substance: RISPERIDONE
     Indication: SCHIZOPHRENIA
     Dosage: FOR 13 MONTHS
     Route: 065
     Dates: start: 2012
  3. RISPERDAL [Suspect]
     Active Substance: RISPERIDONE
     Indication: SCHIZOPHRENIA
     Route: 065
     Dates: end: 2015
  4. XANAX [Concomitant]
     Active Substance: ALPRAZOLAM
  5. RISPERDAL [Suspect]
     Active Substance: RISPERIDONE
     Indication: SCHIZOPHRENIA
     Route: 065
  6. RITALIN [Concomitant]
     Active Substance: METHYLPHENIDATE HYDROCHLORIDE
  7. ABILIFY [Concomitant]
     Active Substance: ARIPIPRAZOLE

REACTIONS (24)
  - Psychiatric symptom [Unknown]
  - Overdose [Unknown]
  - Amnesia [Recovering/Resolving]
  - Weight decreased [Unknown]
  - Tremor [Unknown]
  - Feeling abnormal [Unknown]
  - Seizure [Unknown]
  - Treatment noncompliance [Unknown]
  - Disturbance in social behaviour [Unknown]
  - Tobacco user [Unknown]
  - Apathy [Recovering/Resolving]
  - Mastitis [Unknown]
  - Speech disorder [Recovered/Resolved]
  - Screaming [Unknown]
  - Muscle spasms [Recovered/Resolved]
  - Somnolence [Recovering/Resolving]
  - Crying [Unknown]
  - Anger [Unknown]
  - Depression [Unknown]
  - Sluggishness [Unknown]
  - Intentional self-injury [Unknown]
  - Mood swings [Unknown]
  - Tic [Unknown]
  - Vision blurred [Unknown]
